FAERS Safety Report 8107959-X (Version None)
Quarter: 2012Q1

REPORT INFORMATION
  Report Type: 
  Country: None (occurrence: None)
  Receive Date: 20120202
  Receipt Date: 20120116
  Transmission Date: 20120608
  Serious: Yes (Death, Other)
  Sender: FDA-Public Use
  Company Number: US-ROCHE-630261

PATIENT

DRUGS (3)
  1. XELODA [Suspect]
     Indication: BREAST CANCER METASTATIC
     Route: 065
  2. HERCEPTIN [Suspect]
     Indication: BREAST CANCER METASTATIC
     Dosage: TRASTUZUMAB NOT A STUDY DRUG.
     Route: 065
  3. LAPATINIB [Suspect]
     Indication: BREAST CANCER METASTATIC
     Dosage: STARTING DOSE
     Route: 065

REACTIONS (6)
  - SMALL INTESTINAL PERFORATION [None]
  - NAUSEA [None]
  - METASTASES TO CENTRAL NERVOUS SYSTEM [None]
  - HYPERBILIRUBINAEMIA [None]
  - DIARRHOEA [None]
  - PALMAR-PLANTAR ERYTHRODYSAESTHESIA SYNDROME [None]
